FAERS Safety Report 10059778 (Version 2)
Quarter: 2014Q2

REPORT INFORMATION
  Report Type: Report from Study
  Country: BR (occurrence: BR)
  Receive Date: 20140404
  Receipt Date: 20140404
  Transmission Date: 20141212
  Serious: Yes (Hospitalization)
  Sender: FDA-Public Use
  Company Number: BR-ABBVIE-14P-020-1193010-00

PATIENT
  Age: 55 Year
  Sex: Male
  Weight: 113 kg

DRUGS (12)
  1. HUMIRA [Suspect]
     Indication: RHEUMATOID ARTHRITIS
     Route: 058
     Dates: start: 20130724, end: 20131230
  2. HUMIRA [Suspect]
     Route: 058
     Dates: start: 20140319
  3. ENALAPRIL [Concomitant]
     Indication: BLOOD PRESSURE ABNORMAL
     Route: 048
     Dates: start: 1999
  4. METFORMIN [Concomitant]
     Indication: DIABETES MELLITUS
     Route: 048
     Dates: start: 2010
  5. EXODUS [Concomitant]
     Indication: PRODUCT USED FOR UNKNOWN INDICATION
     Route: 048
     Dates: start: 201308
  6. OMENAX [Concomitant]
     Indication: GASTRIC DISORDER
     Route: 048
  7. OMENAX [Concomitant]
     Indication: PROPHYLAXIS
  8. ACARBOSE [Concomitant]
     Indication: DIABETES MELLITUS
     Route: 048
     Dates: start: 2012
  9. LIPIBLOCK [Concomitant]
     Indication: HEPATIC STEATOSIS
     Route: 048
     Dates: start: 2012
  10. OMEPRAZOLE [Concomitant]
     Indication: GASTRIC DISORDER
  11. LIPIBLOCK [Concomitant]
     Indication: HEPATIC STEATOSIS
  12. EXODUS [Concomitant]
     Indication: PRODUCT USED FOR UNKNOWN INDICATION

REACTIONS (5)
  - Arthropod bite [Unknown]
  - Staphylococcal infection [Recovered/Resolved with Sequelae]
  - Immunodeficiency [Recovered/Resolved]
  - Dyspnoea [Not Recovered/Not Resolved]
  - Platelet count increased [Unknown]
